FAERS Safety Report 9421862 (Version 1)
Quarter: 2013Q3

REPORT INFORMATION
  Report Type: Spontaneous
  Country: US (occurrence: None)
  Receive Date: 20130724
  Receipt Date: 20130724
  Transmission Date: 20140515
  Serious: Yes (Other)
  Sender: FDA-Public Use
  Company Number: None

PATIENT
  Sex: Female
  Weight: 56.7 kg

DRUGS (2)
  1. RESTASIS [Suspect]
     Indication: MACULAR DEGENERATION
     Dosage: VIALS 0.4 ML EACH TWICE DAILY 12 HRS APART
     Dates: start: 20130212, end: 20130408
  2. FLUOROMETHOLONE [Suspect]

REACTIONS (7)
  - Rash [None]
  - Headache [None]
  - Eye irritation [None]
  - Eye pain [None]
  - Eye pruritus [None]
  - Lacrimation increased [None]
  - Vision blurred [None]
